FAERS Safety Report 8874511 (Version 3)
Quarter: 2013Q1

REPORT INFORMATION
  Report Type: Report from Study
  Country: US (occurrence: US)
  Receive Date: 20121023
  Receipt Date: 20130121
  Transmission Date: 20140127
  Serious: Yes (Hospitalization, Other)
  Sender: FDA-Public Use
  Company Number: US-VERTEX PHARMACEUTICAL INC.-2012-023237

PATIENT
  Sex: Male

DRUGS (4)
  1. VX-950 (TELAPREVIR) [Suspect]
     Indication: HEPATITIS C
     Dosage: 750 MG, TID
     Route: 048
     Dates: start: 2011, end: 201210
  2. RIBASPHERE [Suspect]
     Indication: HEPATITIS C
     Dosage: 3 IN  AM, 4 IN PM
     Route: 048
     Dates: start: 2011, end: 201210
  3. PEGASYS [Suspect]
     Indication: HEPATITIS C
     Dosage: 180 ?G, QW
     Route: 058
     Dates: start: 2011, end: 201210
  4. EGRIFTA [Concomitant]
     Dosage: 2 MG, QD
     Route: 058
     Dates: start: 2012, end: 2012

REACTIONS (12)
  - Respiratory failure [Unknown]
  - Bacteraemia [Unknown]
  - Coma [Unknown]
  - Sepsis [Unknown]
  - Renal failure acute [Recovered/Resolved]
  - Hepatic failure [Unknown]
  - Pneumonia [Unknown]
  - Polyneuropathy [Unknown]
  - Adverse drug reaction [Unknown]
  - Cryoglobulinaemia [Unknown]
  - Rheumatoid arthritis [Unknown]
  - Off label use [Unknown]
